FAERS Safety Report 7256620-2 (Version None)
Quarter: 2011Q1

REPORT INFORMATION
  Report Type: 
  Country: None (occurrence: None)
  Receive Date: 20110129
  Receipt Date: 20100702
  Transmission Date: 20110831
  Serious: No
  Sender: FDA-Public Use
  Company Number: US-ABBOTT-10P-163-0654955-00

PATIENT
  Age: 39 Year
  Sex: Female

DRUGS (9)
  1. B12 SHOT [Concomitant]
     Indication: VITAMIN B12 DEFICIENCY
     Route: 050
  2. HUMIRA [Suspect]
     Indication: CROHN'S DISEASE
     Dates: start: 20100507
  3. FOSAMAX [Concomitant]
     Indication: OSTEOPOROSIS
     Route: 048
  4. VALIUM [Concomitant]
     Indication: INSOMNIA
     Dosage: AT BEDTIME
     Route: 048
  5. HYDROCODONE [Concomitant]
     Indication: PAIN
     Dosage: 1 EVERY 6 HOURS AS NEEDED
     Route: 048
  6. ENSURE [Concomitant]
     Indication: BLOOD POTASSIUM DECREASED
     Dosage: 2 BOTTLES/DAY
  7. ELAVIL [Concomitant]
     Indication: INSOMNIA
     Dosage: AT NIGHT
     Route: 048
  8. DEPO-PROVERA [Concomitant]
     Indication: CONTRACEPTION
     Route: 050
  9. XANAX [Concomitant]
     Indication: INSOMNIA
     Dosage: NIGHTLY
     Route: 048

REACTIONS (3)
  - DYSPHAGIA [None]
  - INSOMNIA [None]
  - FATIGUE [None]
